FAERS Safety Report 16048207 (Version 4)
Quarter: 2019Q2

REPORT INFORMATION
  Report Type: Spontaneous
  Country: US (occurrence: US)
  Receive Date: 20190307
  Receipt Date: 20190508
  Transmission Date: 20190711
  Serious: Yes (Hospitalization, Other)
  Sender: FDA-Public Use
  Company Number: US-ASTRAZENECA-2019SE34465

PATIENT
  Age: 30109 Day
  Sex: Female
  Weight: 93 kg

DRUGS (2)
  1. TUDORZA PRESSAIR [Suspect]
     Active Substance: ACLIDINIUM BROMIDE
     Indication: ASTHMA
     Dosage: 400 MCGS, ONE PUFF TWICE DAILY
     Route: 055
     Dates: start: 2016
  2. TUDORZA PRESSAIR [Suspect]
     Active Substance: ACLIDINIUM BROMIDE
     Indication: CHRONIC OBSTRUCTIVE PULMONARY DISEASE
     Dosage: 400 MCGS, ONE PUFF TWICE DAILY
     Route: 055
     Dates: start: 2016

REACTIONS (9)
  - Decreased appetite [Unknown]
  - Pulmonary thrombosis [Unknown]
  - Product dose omission [Unknown]
  - Fall [Unknown]
  - Head injury [Recovering/Resolving]
  - Insomnia [Unknown]
  - Fatigue [Unknown]
  - Mental impairment [Unknown]
  - Device malfunction [Unknown]

NARRATIVE: CASE EVENT DATE: 20190204
